FAERS Safety Report 8459532-1 (Version None)
Quarter: 2012Q2

REPORT INFORMATION
  Report Type: 
  Country: None (occurrence: None)
  Receive Date: 20120622
  Receipt Date: 20120618
  Transmission Date: 20120825
  Serious: Yes (Death, Other)
  Sender: FDA-Public Use
  Company Number: DE-JNJFOC-20120512025

PATIENT
  Sex: Male
  Weight: 60 kg

DRUGS (5)
  1. SPIRIVA [Concomitant]
     Route: 048
  2. PALIPERIDONE [Suspect]
     Route: 030
     Dates: start: 20120209, end: 20120209
  3. PALIPERIDONE [Suspect]
     Route: 030
     Dates: start: 20120202, end: 20120202
  4. PALIPERIDONE [Suspect]
     Indication: SCHIZOPHRENIA, PARANOID TYPE
     Route: 030
     Dates: start: 20120119, end: 20120119
  5. ALBUTEROL [Concomitant]
     Route: 065

REACTIONS (2)
  - DEATH [None]
  - INFECTIVE EXACERBATION OF CHRONIC OBSTRUCTIVE AIRWAYS DISEASE [None]
